FAERS Safety Report 19521687 (Version 1)
Quarter: 2021Q3

REPORT INFORMATION
  Report Type: Report from Study
  Country: KR (occurrence: KR)
  Receive Date: 20210713
  Receipt Date: 20210713
  Transmission Date: 20211014
  Serious: Yes (Death, Life-Threatening, Hospitalization, Other)
  Sender: FDA-Public Use
  Company Number: KR-BRISTOL-MYERS SQUIBB COMPANY-BMS-2021-048748

PATIENT
  Age: 57 Year
  Sex: Female
  Weight: 60 kg

DRUGS (52)
  1. GRASIN [Concomitant]
     Indication: NEUTROPHIL COUNT DECREASED
     Dosage: 300 MICROGRAM, QD
     Route: 058
     Dates: start: 20210517
  2. GLYPRESSIN [Concomitant]
     Active Substance: TERLIPRESSIN
     Indication: NEUTROPHIL COUNT DECREASED
     Dosage: 2 MILLIGRAM, QD
     Route: 042
     Dates: start: 20210517, end: 20210519
  3. BINICAPIN [Concomitant]
     Indication: PROPHYLAXIS
     Dosage: 3 MILLIGRAM, QD
     Route: 042
     Dates: start: 20210527
  4. BINICAPIN [Concomitant]
     Dosage: 2 MILLIGRAM, QD
     Route: 042
     Dates: start: 20210529
  5. MUCOMYST [Concomitant]
     Active Substance: ACETYLCYSTEINE
     Indication: PROPHYLAXIS
     Dosage: 800 MILLIGRAM, TID
     Route: 042
     Dates: start: 20210518, end: 20210603
  6. PANTOLOC [Concomitant]
     Active Substance: PANTOPRAZOLE SODIUM
     Indication: PROPHYLAXIS
     Dosage: 40 MILLIGRAM, QD
     Route: 042
     Dates: start: 20210521, end: 20210608
  7. PENIRAMIN [Concomitant]
     Indication: PROPHYLAXIS
     Dosage: 4 MILLIGRAM, QD
     Route: 042
     Dates: start: 20210517, end: 20210608
  8. SODIUM BICARBONATE. [Concomitant]
     Active Substance: SODIUM BICARBONATE
     Indication: PROPHYLAXIS
     Dosage: 220MEQ, QD
     Route: 042
     Dates: start: 20210517, end: 20210518
  9. VASOPRESSIN. [Concomitant]
     Active Substance: VASOPRESSIN
     Indication: PROPHYLAXIS
     Dosage: 60 UNIT, QD
     Route: 042
     Dates: start: 20210517, end: 20210518
  10. NIVOLUMAB [Suspect]
     Active Substance: NIVOLUMAB
     Indication: BREAST CANCER
     Dosage: 360 MILLIGRAM, Q3WK
     Route: 042
     Dates: start: 20201027, end: 20210511
  11. CRAVIT [Concomitant]
     Active Substance: LEVOFLOXACIN
     Indication: PROPHYLAXIS
     Dosage: 750 MILLIGRAM, QD
     Route: 042
     Dates: start: 20210517, end: 20210518
  12. ALBUMIN [Concomitant]
     Active Substance: ALBUMIN HUMAN
     Indication: HYPOALBUMINAEMIA
     Dosage: 100 MILLILITER, QD
     Route: 042
     Dates: start: 20210519, end: 20210608
  13. ATROVENT [Concomitant]
     Active Substance: IPRATROPIUM BROMIDE
     Indication: PROPHYLAXIS
     Dosage: 0.5 MILLIGRAM, TID
     Route: 061
     Dates: start: 20210518, end: 20210603
  14. BOSMIN [EPINEPHRINE] [Concomitant]
     Dosage: 50 MILLILITER, TID
     Dates: start: 20210526, end: 20210528
  15. CALCIUM CHLORIDE. [Concomitant]
     Active Substance: CALCIUM CHLORIDE
     Indication: PROPHYLAXIS
     Dosage: 600 MILLIGRAM, QD
     Route: 042
     Dates: start: 20210604
  16. COMBIFLEX PERI [Concomitant]
     Indication: NUTRITIONAL SUPPLEMENTATION
     Dosage: 1000 MILLILITER, QD
     Route: 042
     Dates: start: 20210528, end: 20210608
  17. NEXIUM [ESOMEPRAZOLE MAGNESIUM TRIHYDRATE] [Concomitant]
     Dosage: 200 MILLIGRAM, QID
     Route: 042
     Dates: start: 20210518, end: 20210519
  18. VITAMIN K [Concomitant]
     Active Substance: PHYTONADIONE
     Indication: PROPHYLAXIS
     Dosage: 5 MG, PRN
     Route: 042
     Dates: start: 20210603, end: 20210606
  19. BOSMIN [EPINEPHRINE] [Concomitant]
     Indication: PROPHYLAXIS
     Dosage: 50 MILLILITER, QD
     Dates: start: 20210518
  20. HEPA?MERZ INFUSION [Concomitant]
     Indication: PROPHYLAXIS
     Dosage: 40 GRAM, QD
     Route: 042
     Dates: start: 20210527, end: 20210528
  21. MOTILITONE [Concomitant]
     Active Substance: HERBALS
     Indication: PROPHYLAXIS
     Dosage: 30 MILLIGRAM, TID
     Route: 048
     Dates: start: 20210603, end: 20210608
  22. NORPIN [NOREPINEPHRINE] [Concomitant]
     Indication: PROPHYLAXIS
     Dosage: 120 MILLIGRAM, QD
     Route: 042
     Dates: start: 20210518
  23. TAMIPOOL [VITAMINS NOS] [Concomitant]
     Dosage: 5 MILLILITER, QD
     Route: 042
     Dates: start: 20210526, end: 20210527
  24. URSA [Concomitant]
     Active Substance: URSODIOL
     Indication: PROPHYLAXIS
     Dosage: 300 MILLIGRAM, TID
     Route: 048
     Dates: start: 20210602, end: 20210608
  25. FURTMAN [Concomitant]
     Dosage: 0.25 UNK
     Route: 042
     Dates: start: 20210528, end: 20210602
  26. DUPHALAC EASY [Concomitant]
     Active Substance: LACTULOSE
     Indication: PROPHYLAXIS
     Dosage: 300 ML, PRN
     Route: 065
     Dates: start: 20210529, end: 20210608
  27. DUPHALAC EASY [Concomitant]
     Active Substance: LACTULOSE
     Dosage: 3.5 G, PRN
     Route: 062
     Dates: start: 20210525, end: 20210608
  28. KABITWIN PERI [Concomitant]
     Indication: NUTRITIONAL SUPPLEMENTATION
     Dosage: 500 MILLILITER, QD
     Route: 042
     Dates: start: 20210517, end: 20210518
  29. KETAMINE HYDROCHLORIDE. [Concomitant]
     Active Substance: KETAMINE HYDROCHLORIDE
     Indication: PROPHYLAXIS
     Dosage: 100 MILLIGRAM, QD
     Route: 042
     Dates: start: 20210517
  30. NORMIX [Concomitant]
     Active Substance: RIFAXIMIN
     Indication: PROPHYLAXIS
     Dosage: 400 MILLIGRAM, TID
     Route: 042
     Dates: start: 20210605, end: 20210608
  31. NORPIN [NOREPINEPHRINE] [Concomitant]
     Dosage: 80 MILLIGRAM, QD
     Route: 042
     Dates: start: 20210519, end: 20210520
  32. NORPIN [NOREPINEPHRINE] [Concomitant]
     Dosage: 8 MG, PRN
     Route: 042
     Dates: start: 20210520, end: 20210604
  33. PLASMA SOLUTION A [Concomitant]
     Indication: PROPHYLAXIS
     Dosage: 1000 MILLILITER, QD
     Route: 042
     Dates: start: 20210517, end: 20210518
  34. POTASSIUM PHOSPHATE MONOBASIC [Concomitant]
     Active Substance: POTASSIUM PHOSPHATE, MONOBASIC
     Indication: PROPHYLAXIS
     Dosage: 20 ML, PRN
     Route: 042
     Dates: start: 20210521, end: 20210606
  35. FURTMAN [Concomitant]
     Indication: PROPHYLAXIS
     Dosage: 0.1 MILLILITER, QD
     Route: 042
     Dates: start: 20210517, end: 20210518
  36. DUPHALAC EASY [Concomitant]
     Active Substance: LACTULOSE
     Dosage: 15 MILLILITER, TID
     Dates: start: 20210602, end: 20210608
  37. PERIDEX [DEXAMETHASONE] [Concomitant]
     Active Substance: DEXAMETHASONE
     Indication: PROPHYLAXIS
     Dosage: 6 GRAM, QD
     Route: 062
     Dates: start: 20210518
  38. WINUF [Concomitant]
     Indication: PROPHYLAXIS
     Dosage: 1435 MILLILITER, QD
     Route: 042
     Dates: start: 20210518, end: 20210524
  39. ERIBULIN MESILATE [Suspect]
     Active Substance: ERIBULIN
     Indication: BREAST CANCER
     Dosage: 1.1 MILLIGRAM/SQ. METER, EVERY CYCLE DAY 1, DAY 8
     Route: 042
     Dates: start: 20201027, end: 20210517
  40. CALCIUM CHLORIDE. [Concomitant]
     Active Substance: CALCIUM CHLORIDE
     Dosage: 600 MILLIGRAM, BID
     Route: 042
     Dates: start: 20210608
  41. SUCCICHOLINE [Concomitant]
     Indication: PROPHYLAXIS
     Dosage: 75 MILLIGRAM, QD
     Route: 042
     Dates: start: 20210517
  42. TAPOCIN [Concomitant]
     Indication: PROPHYLAXIS
     Dosage: 400 MILLIGRAM
     Route: 042
     Dates: start: 20210521, end: 20210603
  43. VOLULYTE [Concomitant]
     Indication: PROPHYLAXIS
     Dosage: 500 MILLILITER, QD
     Route: 042
     Dates: start: 20210607
  44. AMOBUROFEN [Concomitant]
     Indication: PROPHYLAXIS
     Dosage: 400 MILLIGRAM, QD
     Route: 042
     Dates: start: 20210525
  45. BEAROBAN [Concomitant]
     Indication: PROPHYLAXIS
     Dosage: PRN
     Route: 062
     Dates: start: 20210527
  46. DENOGAN [Concomitant]
     Active Substance: PROPACETAMOL HYDROCHLORIDE
     Indication: PROPHYLAXIS
     Dosage: 1000 MG PNR
     Route: 042
     Dates: start: 20210521, end: 20210605
  47. LASIX [Concomitant]
     Active Substance: FUROSEMIDE
     Indication: PROPHYLAXIS
     Dosage: 10 MG, PNR
     Route: 042
     Dates: start: 20210518, end: 20210608
  48. NEXIUM [ESOMEPRAZOLE MAGNESIUM TRIHYDRATE] [Concomitant]
     Indication: PROPHYLAXIS
     Dosage: 80 MILLIGRAM, QD
     Route: 042
     Dates: start: 20210517
  49. SMOFKABIVEN [Concomitant]
     Active Substance: AMINO ACIDS\DEXTROSE\ELECTROLYTES NOS\SOYBEAN OIL
     Indication: NUTRITIONAL SUPPLEMENTATION
     Dosage: 986 MILLILITER, QD
     Route: 042
     Dates: start: 20210524, end: 20210528
  50. TAMIPOOL [VITAMINS NOS] [Concomitant]
     Indication: PROPHYLAXIS
     Dosage: 2.5 MILLILITER, QD
     Route: 042
     Dates: start: 20210517, end: 20210518
  51. VASOPRESSIN. [Concomitant]
     Active Substance: VASOPRESSIN
     Dosage: 30 UNIT, QD
     Route: 042
     Dates: start: 20210603, end: 20210604
  52. VECARON [Concomitant]
     Indication: PROPHYLAXIS
     Dosage: 4 MILLIGRAM, QD
     Dates: start: 20210528, end: 20210603

REACTIONS (2)
  - Pneumonia aspiration [Fatal]
  - Haematemesis [Not Recovered/Not Resolved]

NARRATIVE: CASE EVENT DATE: 20210517
